FAERS Safety Report 4663574-1 (Version None)
Quarter: 2005Q2

REPORT INFORMATION
  Report Type: 
  Country: None (occurrence: None)
  Receive Date: 20050517
  Receipt Date: 20031117
  Transmission Date: 20051028
  Serious: Yes (Hospitalization)
  Sender: FDA-Public Use
  Company Number: US-AMGEN-KDL057298

PATIENT
  Sex: Male

DRUGS (5)
  1. PROCRIT [Suspect]
     Indication: PRE-EXISTING DISEASE
     Route: 058
     Dates: start: 20030501
  2. ARANESP [Suspect]
     Indication: PRE-EXISTING DISEASE
  3. IRON [Concomitant]
  4. LANOXIN [Concomitant]
  5. AMOXICILLIN [Concomitant]

REACTIONS (9)
  - BLOOD PRESSURE INCREASED [None]
  - CHEST PAIN [None]
  - DISEASE RECURRENCE [None]
  - FALL [None]
  - FATIGUE [None]
  - HEADACHE [None]
  - HYPERTENSION [None]
  - INSOMNIA [None]
  - VOMITING [None]
